FAERS Safety Report 5112737-X (Version None)
Quarter: 2006Q3

REPORT INFORMATION
  Report Type: 
  Country: None (occurrence: None)
  Receive Date: 20060922
  Receipt Date: 20060913
  Transmission Date: 20061208
  Serious: Yes (Other)
  Sender: FDA-Public Use
  Company Number: DE-JNJFOC-20060801331

PATIENT
  Sex: Male
  Weight: 5.5 kg

DRUGS (3)
  1. TOPAMAX [Suspect]
     Dosage: 5MG-0-10MG
     Route: 048
  2. TOPAMAX [Suspect]
     Dosage: 5MG-0-15MG
     Route: 048
  3. TOPAMAX [Suspect]
     Indication: AKATHISIA
     Dosage: 0-0-5MG
     Route: 048

REACTIONS (4)
  - AGITATION [None]
  - AKATHISIA [None]
  - FEEDING DISORDER [None]
  - SCREAMING [None]
